FAERS Safety Report 16451335 (Version 1)
Quarter: 2019Q2

REPORT INFORMATION
  Report Type: Spontaneous
  Country: US (occurrence: US)
  Receive Date: 20190619
  Receipt Date: 20190619
  Transmission Date: 20190711
  Serious: No
  Sender: FDA-Public Use
  Company Number: US-MYLANLABS-2019M1055848

PATIENT
  Age: 69 Year
  Sex: Male
  Weight: 93 kg

DRUGS (3)
  1. LISINOPRIL. [Concomitant]
     Active Substance: LISINOPRIL
     Indication: BLOOD PRESSURE ABNORMAL
  2. BISOPROLOL [Concomitant]
     Active Substance: BISOPROLOL
     Indication: BLOOD PRESSURE ABNORMAL
  3. CHLORTHALIDONE TABLETS USP [Suspect]
     Active Substance: CHLORTHALIDONE
     Indication: HYPERTENSION
     Dosage: 1 UNK
     Route: 048
     Dates: start: 20190604, end: 20190610

REACTIONS (6)
  - Rash erythematous [Not Recovered/Not Resolved]
  - Skin exfoliation [Not Recovered/Not Resolved]
  - Burning sensation [Not Recovered/Not Resolved]
  - Pain of skin [Not Recovered/Not Resolved]
  - Fall [Unknown]
  - Dry skin [Not Recovered/Not Resolved]

NARRATIVE: CASE EVENT DATE: 201906
